FAERS Safety Report 12806030 (Version 3)
Quarter: 2016Q4

REPORT INFORMATION
  Report Type: Spontaneous
  Country: US (occurrence: US)
  Receive Date: 20161004
  Receipt Date: 20161101
  Transmission Date: 20170207
  Serious: No
  Sender: FDA-Public Use
  Company Number: US-BRISTOL-MYERS SQUIBB COMPANY-BMS-2016-081919

PATIENT
  Sex: Female

DRUGS (1)
  1. OPDIVO [Suspect]
     Active Substance: NIVOLUMAB
     Indication: LUNG NEOPLASM
     Dosage: 6 UNK, UNK
     Route: 042
     Dates: start: 2016

REACTIONS (5)
  - Mouth ulceration [Unknown]
  - Oral pain [Unknown]
  - Fatigue [Unknown]
  - Swollen tongue [Unknown]
  - Paraesthesia oral [Unknown]
